FAERS Safety Report 16787424 (Version 2)
Quarter: 2019Q3

REPORT INFORMATION
  Report Type: Spontaneous
  Country: IN (occurrence: US)
  Receive Date: 20190909
  Receipt Date: 20190911
  Transmission Date: 20191005
  Serious: Yes (Death, Life-Threatening, Hospitalization, Other)
  Sender: FDA-Public Use
  Company Number: US-BAYER-2019-162609

PATIENT
  Age: 32 Year
  Sex: Female

DRUGS (1)
  1. ALKA-SELTZER PLUS SORE THROAT RELIEF HONEY LEMON FLAVOR [Suspect]
     Active Substance: ACETAMINOPHEN
     Dosage: 187.5 G, UNK
     Route: 048

REACTIONS (9)
  - Drug-induced liver injury [Fatal]
  - Acidosis [Unknown]
  - Cardiac arrest [Fatal]
  - Arrhythmia supraventricular [Unknown]
  - Acute hepatic failure [Fatal]
  - Hepatic encephalopathy [Not Recovered/Not Resolved]
  - Intentional overdose [Fatal]
  - Coagulopathy [Fatal]
  - Hypotension [Unknown]
